FAERS Safety Report 18792014 (Version 1)
Quarter: 2021Q1

REPORT INFORMATION
  Report Type: Spontaneous
  Country: NL (occurrence: NL)
  Receive Date: 20210126
  Receipt Date: 20210126
  Transmission Date: 20210419
  Serious: Yes (Hospitalization, Other)
  Sender: FDA-Public Use
  Company Number: NL-SUN PHARMACEUTICAL INDUSTRIES LTD-2021R1-276351

PATIENT
  Age: 9 Year
  Sex: Female

DRUGS (7)
  1. IMIPENEM AND CILASTATIN [Suspect]
     Active Substance: CILASTATIN SODIUM\IMIPENEM
     Indication: MASTOIDITIS
     Dosage: 60/60 MG/KG/DAY IN 2 TO 4 DOSES
     Route: 042
  2. TOPICAL IMIPENEM?CILASTATIN [Suspect]
     Active Substance: CILASTATIN SODIUM\IMIPENEM
     Indication: MASTOIDITIS
     Dosage: 5/5 MG/ML; THREE DROPS THREE TIMES DAILY
     Route: 061
  3. CLOFAZIMINE [Suspect]
     Active Substance: CLOFAZIMINE
     Dosage: 100 MILLIGRAM, OD
     Route: 048
  4. TOPICAL TIGECYCLINE [Suspect]
     Active Substance: TIGECYCLINE
     Indication: MASTOIDITIS
     Dosage: 5 MG/1ML, TID,3 DROPS
     Route: 061
  5. AZITHROMYCIN ANHYDROUS. [Suspect]
     Active Substance: AZITHROMYCIN ANHYDROUS
     Indication: MASTOIDITIS
     Dosage: 10 MILLIGRAM/KILOGRAM, DAILY
     Route: 048
  6. CLOFAZIMINE [Suspect]
     Active Substance: CLOFAZIMINE
     Indication: MASTOIDITIS
     Dosage: 50 MILLIGRAM, OD
     Route: 048
  7. TIGECYCLINE. [Suspect]
     Active Substance: TIGECYCLINE
     Indication: MASTOIDITIS
     Dosage: 2.4 MILLIGRAM/KILOGRAM, DAILY
     Route: 042

REACTIONS (6)
  - Vomiting [Recovered/Resolved]
  - Hepatotoxicity [Unknown]
  - Fatigue [Unknown]
  - Venous thrombosis [Recovered/Resolved]
  - Arthropathy [Unknown]
  - Nausea [Recovered/Resolved]
